FAERS Safety Report 6586902-9 (Version None)
Quarter: 2010Q1

REPORT INFORMATION
  Report Type: 
  Country: None (occurrence: None)
  Receive Date: 20100217
  Receipt Date: 20090731
  Transmission Date: 20100710
  Serious: Yes (Other)
  Sender: FDA-Public Use
  Company Number: US-ALLERGAN-0910714US

PATIENT
  Age: 49 Year
  Sex: Male

DRUGS (7)
  1. BOTOX COSMETIC [Suspect]
     Indication: SKIN WRINKLING
     Dosage: 20 UNITS, SINGLE
     Route: 030
     Dates: start: 20090707, end: 20090707
  2. CLONIDINE [Concomitant]
     Indication: DRUG USE FOR UNKNOWN INDICATION
  3. DIOVAN [Concomitant]
     Indication: DRUG USE FOR UNKNOWN INDICATION
  4. CELLCEPT [Concomitant]
     Indication: DRUG USE FOR UNKNOWN INDICATION
  5. NEORAL [Concomitant]
     Indication: DRUG USE FOR UNKNOWN INDICATION
  6. PROPECIA [Concomitant]
     Indication: DRUG USE FOR UNKNOWN INDICATION
  7. PRAVACHOL [Concomitant]
     Indication: DRUG USE FOR UNKNOWN INDICATION

REACTIONS (5)
  - EYELID PTOSIS [None]
  - HEADACHE [None]
  - HYPOAESTHESIA FACIAL [None]
  - PARAESTHESIA [None]
  - VISUAL IMPAIRMENT [None]
